FAERS Safety Report 21004684 (Version 1)
Quarter: 2022Q2

REPORT INFORMATION
  Report Type: Spontaneous
  Country: DE (occurrence: DE)
  Receive Date: 20220624
  Receipt Date: 20220624
  Transmission Date: 20220720
  Serious: Yes (Other)
  Sender: FDA-Public Use
  Company Number: DE-JNJFOC-20220643311

PATIENT

DRUGS (1)
  1. NICORETTE [Suspect]
     Active Substance: NICOTINE
     Indication: Smoking cessation therapy
     Dosage: 2 MG, QD, HE CHEWS ABOUT 60 NICORETTE 2 MG A DAY
     Route: 048

REACTIONS (5)
  - Tumour haemorrhage [Not Recovered/Not Resolved]
  - Incorrect product administration duration [Not Recovered/Not Resolved]
  - Drug dependence [Not Recovered/Not Resolved]
  - Salivary gland neoplasm [Not Recovered/Not Resolved]
  - Drooling [Not Recovered/Not Resolved]
